FAERS Safety Report 6509444-5 (Version None)
Quarter: 2009Q4

REPORT INFORMATION
  Report Type: 
  Country: None (occurrence: None)
  Receive Date: 20091217
  Receipt Date: 20090203
  Transmission Date: 20100525
  Serious: Yes (Hospitalization)
  Sender: FDA-Public Use
  Company Number: 002551

PATIENT
  Sex: Male
  Weight: 7 kg

DRUGS (8)
  1. NEUPRO [Suspect]
     Indication: PARKINSON'S DISEASE
     Dosage: 2 MG QD TRANSDERMAL 4 MG QD TRANSDERMAL 6 MG QD TRANSDERMAL 8 MG QD TRANSDERMAL
     Route: 062
     Dates: start: 20090121, end: 20090401
  2. NEUPRO [Suspect]
     Indication: PARKINSON'S DISEASE
     Dosage: 2 MG QD TRANSDERMAL 4 MG QD TRANSDERMAL 6 MG QD TRANSDERMAL 8 MG QD TRANSDERMAL
     Route: 062
     Dates: start: 20090402, end: 20091007
  3. NEUPRO [Suspect]
     Indication: PARKINSON'S DISEASE
     Dosage: 2 MG QD TRANSDERMAL 4 MG QD TRANSDERMAL 6 MG QD TRANSDERMAL 8 MG QD TRANSDERMAL
     Route: 062
     Dates: start: 20091008, end: 20091028
  4. NEUPRO [Suspect]
     Indication: PARKINSON'S DISEASE
     Dosage: 2 MG QD TRANSDERMAL 4 MG QD TRANSDERMAL 6 MG QD TRANSDERMAL 8 MG QD TRANSDERMAL
     Route: 062
     Dates: start: 20091029
  5. LEVODOPA COMP B (LEVODOPA COMP B) (NOT SPECIFIED) [Suspect]
     Indication: PARKINSON'S DISEASE
     Dosage: 50/12.5 MG THREE TIMES DAILY, 100/25 MG THREE TIMES DAILY, 100/25 MG FOUR TIMES DAILY
     Dates: start: 20080424, end: 20080521
  6. LEVODOPA COMP B (LEVODOPA COMP B) (NOT SPECIFIED) [Suspect]
     Indication: PARKINSON'S DISEASE
     Dosage: 50/12.5 MG THREE TIMES DAILY, 100/25 MG THREE TIMES DAILY, 100/25 MG FOUR TIMES DAILY
     Dates: start: 20080522, end: 20091111
  7. LEVODOPA COMP B (LEVODOPA COMP B) (NOT SPECIFIED) [Suspect]
     Indication: PARKINSON'S DISEASE
     Dosage: 50/12.5 MG THREE TIMES DAILY, 100/25 MG THREE TIMES DAILY, 100/25 MG FOUR TIMES DAILY
     Dates: start: 20091112
  8. SOTALOL HCL [Concomitant]

REACTIONS (1)
  - UPPER LIMB FRACTURE [None]
